FAERS Safety Report 16666735 (Version 1)
Quarter: 2019Q3

REPORT INFORMATION
  Report Type: Spontaneous
  Country: US (occurrence: US)
  Receive Date: 20190805
  Receipt Date: 20190805
  Transmission Date: 20191004
  Serious: Yes (Other)
  Sender: FDA-Public Use
  Company Number: US-ACCORD-105401

PATIENT
  Age: 60 Year
  Sex: Female

DRUGS (15)
  1. DOCETAXEL ACCORD [Suspect]
     Active Substance: DOCETAXEL
     Indication: BREAST CANCER
     Dates: start: 20161107, end: 20170130
  2. HERCEPTIN [Suspect]
     Active Substance: TRASTUZUMAB
     Indication: BREAST CANCER
     Dates: start: 20161107, end: 20170130
  3. PERJETA [Suspect]
     Active Substance: PERTUZUMAB
     Indication: BREAST CANCER
     Dates: start: 20161107, end: 20170130
  4. HYDROCODONE [Concomitant]
     Active Substance: HYDROCODONE
     Dates: start: 201401, end: 201712
  5. ANASTROZOLE. [Concomitant]
     Active Substance: ANASTROZOLE
     Dates: start: 201401, end: 201712
  6. SEROQUEL [Concomitant]
     Active Substance: QUETIAPINE FUMARATE
     Dates: start: 2009
  7. SAVELLA [Concomitant]
     Active Substance: MILNACIPRAN HYDROCHLORIDE
     Dates: start: 2009
  8. ARIMIDEX [Suspect]
     Active Substance: ANASTROZOLE
     Indication: BREAST CANCER
     Dates: start: 20161107, end: 20170130
  9. PREGABALIN. [Concomitant]
     Active Substance: PREGABALIN
     Dates: start: 2009
  10. OXYCODONE/OXYCODONE HYDROCHLORIDE/OXYCODONE PECTINATE/OXYCODONE TEREPHTHALATE [Concomitant]
     Dates: start: 201401, end: 201712
  11. CLONAZEPAM. [Concomitant]
     Active Substance: CLONAZEPAM
     Dates: start: 201401, end: 201712
  12. TYLENOL [Concomitant]
     Active Substance: ACETAMINOPHEN
     Dates: start: 200801
  13. ASCORBIC ACID. [Concomitant]
     Active Substance: ASCORBIC ACID
     Dates: start: 200801
  14. PARAPLATIN [Suspect]
     Active Substance: CARBOPLATIN
     Indication: BREAST CANCER
     Dates: start: 20161107, end: 20170130
  15. ERGOCALCIFEROL. [Concomitant]
     Active Substance: ERGOCALCIFEROL
     Dates: start: 201601

REACTIONS (1)
  - Alopecia [Not Recovered/Not Resolved]

NARRATIVE: CASE EVENT DATE: 20161201
